FAERS Safety Report 8266018-6 (Version None)
Quarter: 2012Q1

REPORT INFORMATION
  Report Type: 
  Country: None (occurrence: None)
  Receive Date: 20120327
  Receipt Date: 20090723
  Transmission Date: 20120608
  Serious: Yes (Hospitalization)
  Sender: FDA-Public Use
  Company Number: PHEH2009US08111

PATIENT
  Age: 66 Year
  Sex: Female

DRUGS (4)
  1. PREDNISONE TAB [Concomitant]
  2. VINCRISTINE [Concomitant]
  3. GLEEVEC [Suspect]
     Indication: CERVIX CARCINOMA
     Dosage: 400 MG, BID, ORAL
     Route: 048
     Dates: start: 20080501, end: 20090717
  4. SPRYCEL [Concomitant]

REACTIONS (5)
  - WHITE BLOOD CELL COUNT DECREASED [None]
  - ACUTE LYMPHOCYTIC LEUKAEMIA RECURRENT [None]
  - PLATELET COUNT DECREASED [None]
  - WHITE BLOOD CELL COUNT INCREASED [None]
  - DIARRHOEA [None]
